FAERS Safety Report 17405185 (Version 2)
Quarter: 2020Q1

REPORT INFORMATION
  Report Type: Spontaneous
  Country: NL (occurrence: NL)
  Receive Date: 20200212
  Receipt Date: 20200330
  Transmission Date: 20200409
  Serious: Yes (Other)
  Sender: FDA-Public Use
  Company Number: NL-PFIZER INC-2018482238

PATIENT
  Age: 37 Year
  Sex: Male
  Weight: 120 kg

DRUGS (6)
  1. AMOXICILLINE/CLAVULAANZUUR [Concomitant]
     Active Substance: AMOXICILLIN\CLAVULANATE POTASSIUM
     Dosage: 500/125MG 3X/DAY
     Route: 048
  2. SOMAVERT [Suspect]
     Active Substance: PEGVISOMANT
     Indication: ACROMEGALY
     Dosage: 80 MG, 2X/WEEK
     Route: 058
     Dates: start: 20171220
  3. HYDROCORTISON [HYDROCORTISONE] [Concomitant]
     Dosage: 5 MG, 3X/DAY
     Route: 048
  4. LEVOTHYROXINE. [Concomitant]
     Active Substance: LEVOTHYROXINE
     Dosage: 75 UG, 1X/DAY
     Route: 048
  5. HYDROCORTISON [HYDROCORTISONE] [Concomitant]
     Dosage: 10 MG, 1X/DAY
     Route: 048
  6. CABERGOLINE. [Concomitant]
     Active Substance: CABERGOLINE
     Dosage: 0.5 MG, 3X/WEEK
     Route: 048

REACTIONS (5)
  - Abscess limb [Recovered/Resolved]
  - Product use issue [Unknown]
  - Product dose omission [Unknown]
  - Gait inability [Not Recovered/Not Resolved]
  - Off label use [Unknown]
